FAERS Safety Report 24694996 (Version 1)
Quarter: 2024Q4

REPORT INFORMATION
  Report Type: Spontaneous
  Country: US (occurrence: None)
  Receive Date: 20241203
  Receipt Date: 20241203
  Transmission Date: 20250114
  Serious: Yes (Hospitalization, Other)
  Sender: Public
  Company Number: None

PATIENT
  Age: 82 Year
  Weight: 77.4 kg

DRUGS (1)
  1. REPATHA [Suspect]
     Active Substance: EVOLOCUMAB
     Indication: Product used for unknown indication
     Dosage: OTHER FREQUENCY : EVERYOTHERWEEK;?
     Route: 058
     Dates: start: 20231201

REACTIONS (1)
  - Cerebrovascular accident [None]
